FAERS Safety Report 5965136-2 (Version None)
Quarter: 2008Q4

REPORT INFORMATION
  Report Type: 
  Country: None (occurrence: None)
  Receive Date: 20081125
  Receipt Date: 20081118
  Transmission Date: 20090506
  Serious: Yes (Hospitalization)
  Sender: FDA-Public Use
  Company Number: US-ASTRAZENECA-2008UW25832

PATIENT
  Age: 16298 Day
  Sex: Female

DRUGS (2)
  1. NEXIUM [Suspect]
     Route: 048
  2. SEROQUEL [Suspect]
     Route: 048

REACTIONS (6)
  - CARDIAC FAILURE [None]
  - DIABETES MELLITUS [None]
  - DYSPNOEA [None]
  - HYPERTENSION [None]
  - INFECTION [None]
  - RENAL FAILURE [None]
